FAERS Safety Report 14577837 (Version 3)
Quarter: 2018Q2

REPORT INFORMATION
  Report Type: Spontaneous
  Country: US (occurrence: US)
  Receive Date: 20180227
  Receipt Date: 20180410
  Transmission Date: 20180711
  Serious: Yes (Hospitalization, Other)
  Sender: FDA-Public Use
  Company Number: US-GLAXOSMITHKLINE-US2018031141

PATIENT
  Sex: Female
  Weight: 77.98 kg

DRUGS (14)
  1. FOSAMAX [Suspect]
     Active Substance: ALENDRONATE SODIUM
     Indication: OSTEOPOROSIS
  2. SINGULAIR [Concomitant]
     Active Substance: MONTELUKAST SODIUM
  3. RANITIDINE. [Concomitant]
     Active Substance: RANITIDINE
  4. FLOVENT [Suspect]
     Active Substance: FLUTICASONE PROPIONATE
     Indication: ASTHMA
     Dosage: UNK
     Route: 055
  5. ADVAIR DISKUS [Suspect]
     Active Substance: FLUTICASONE PROPIONATE\SALMETEROL XINAFOATE
     Indication: ASTHMA
     Dosage: 1 PUFF(S), BID
     Route: 055
  6. LOZOL [Concomitant]
     Active Substance: INDAPAMIDE
  7. PROTONIX [Concomitant]
     Active Substance: PANTOPRAZOLE SODIUM
  8. TOPROL XL [Concomitant]
     Active Substance: METOPROLOL SUCCINATE
  9. VENTOLIN HFA [Suspect]
     Active Substance: ALBUTEROL SULFATE
     Indication: PRODUCT USED FOR UNKNOWN INDICATION
     Route: 055
  10. PROLIA [Concomitant]
     Active Substance: DENOSUMAB
  11. ALLOPURINOL. [Concomitant]
     Active Substance: ALLOPURINOL
  12. ASPIRIN. [Concomitant]
     Active Substance: ASPIRIN
  13. POTASSIUM CITRATE. [Concomitant]
     Active Substance: POTASSIUM CITRATE
  14. FLEXERIL [Concomitant]
     Active Substance: CYCLOBENZAPRINE HYDROCHLORIDE

REACTIONS (18)
  - Nephrolithiasis [Recovered/Resolved]
  - Blood calcium decreased [Recovered/Resolved]
  - Myalgia [Unknown]
  - Ear infection [Not Recovered/Not Resolved]
  - Drug ineffective [Unknown]
  - Pulmonary thrombosis [Unknown]
  - Renal stone removal [Unknown]
  - Tremor [Not Recovered/Not Resolved]
  - Blood uric acid increased [Unknown]
  - Sepsis [Recovered/Resolved]
  - Thrombosis [Recovered/Resolved]
  - Bone density decreased [Unknown]
  - Osteoporosis [Not Recovered/Not Resolved]
  - Sinusitis [Not Recovered/Not Resolved]
  - Intentional product misuse [Unknown]
  - Vitamin D decreased [Recovered/Resolved]
  - Vitamin B12 decreased [Recovered/Resolved]
  - Dyspnoea [Unknown]
